FAERS Safety Report 8032689-2 (Version None)
Quarter: 2012Q1

REPORT INFORMATION
  Report Type: 
  Country: None (occurrence: None)
  Receive Date: 20120105
  Receipt Date: 20111221
  Transmission Date: 20120608
  Serious: Yes (Other)
  Sender: FDA-Public Use
  Company Number: MPS1-1000615

PATIENT
  Sex: Male

DRUGS (3)
  1. DEXAMETHASONE [Concomitant]
  2. DIPHENHYDRAMINE HCL [Concomitant]
  3. ALDYRAZYME (LARONIDASE) CONCENTRATE FOR SOLUTION FOR INFUSION [Suspect]
     Indication: MUCOPOLYSACCHARIDOSIS I
     Dosage: INTRAVENOUS
     Route: 042

REACTIONS (3)
  - URTICARIA [None]
  - UMBILICAL HERNIA [None]
  - INFUSION RELATED REACTION [None]
